FAERS Safety Report 9063218 (Version 2)
Quarter: 2013Q1

REPORT INFORMATION
  Report Type: Spontaneous
  Country: CA (occurrence: CA)
  Receive Date: 20130213
  Receipt Date: 20130301
  Transmission Date: 20140127
  Serious: Yes (Death, Hospitalization)
  Sender: FDA-Public Use
  Company Number: CA-GLAXOSMITHKLINE-A1010856A

PATIENT
  Age: 57 None
  Sex: Female

DRUGS (5)
  1. VOTRIENT [Suspect]
     Indication: LEIOMYOSARCOMA
     Dosage: 800MG PER DAY
     Route: 048
     Dates: start: 20121018
  2. TRAZODONE [Concomitant]
  3. NORVASC [Concomitant]
  4. HYDRAZIDE [Concomitant]
  5. LORAZEPAM [Concomitant]

REACTIONS (10)
  - Death [Fatal]
  - Asthenia [Unknown]
  - Decreased appetite [Unknown]
  - Diarrhoea [Unknown]
  - Retching [Unknown]
  - Nausea [Unknown]
  - Blood electrolytes abnormal [Unknown]
  - Blood sodium abnormal [Unknown]
  - Fall [Unknown]
  - Malaise [Unknown]
